FAERS Safety Report 5217505-6 (Version None)
Quarter: 2007Q1

REPORT INFORMATION
  Report Type: 
  Country: None (occurrence: None)
  Receive Date: 20070124
  Receipt Date: 20070115
  Transmission Date: 20070707
  Serious: Yes (Other)
  Sender: FDA-Public Use
  Company Number: 2007PK00098

PATIENT
  Sex: Female

DRUGS (2)
  1. CARBOSTESIN 0.5% HYPERBAR [Suspect]
     Indication: CAESAREAN SECTION
     Route: 024
     Dates: start: 20070101
  2. CARBOSTESIN 0.5% HYPERBAR [Suspect]
     Route: 024
     Dates: start: 20070101

REACTIONS (7)
  - ANAESTHETIC COMPLICATION [None]
  - ASTHENIA [None]
  - DRUG INEFFECTIVE [None]
  - DYSPNOEA [None]
  - PARAESTHESIA [None]
  - PROCEDURAL PAIN [None]
  - SENSORY LOSS [None]
